FAERS Safety Report 7951694-5 (Version None)
Quarter: 2011Q4

REPORT INFORMATION
  Report Type: 
  Country: None (occurrence: None)
  Receive Date: 20111201
  Receipt Date: 20111121
  Transmission Date: 20120403
  Serious: Yes (Other)
  Sender: FDA-Public Use
  Company Number: US-ROCHE-1015943

PATIENT
  Sex: Female

DRUGS (3)
  1. CLONAZEPAM [Suspect]
     Indication: TOURETTE'S DISORDER
  2. TRAMADOL HCL [Suspect]
     Indication: PRODUCT USED FOR UNKNOWN INDICATION
  3. LYRICA [Suspect]
     Indication: PRODUCT USED FOR UNKNOWN INDICATION

REACTIONS (18)
  - BLOOD PRESSURE INCREASED [None]
  - TACHYPHRENIA [None]
  - MALAISE [None]
  - ATRIAL TACHYCARDIA [None]
  - JOINT RANGE OF MOTION DECREASED [None]
  - TREMOR [None]
  - ILL-DEFINED DISORDER [None]
  - PAIN IN EXTREMITY [None]
  - EYE DISORDER [None]
  - ANXIETY [None]
  - TUNNEL VISION [None]
  - INSOMNIA [None]
  - NERVOUS SYSTEM DISORDER [None]
  - ABASIA [None]
  - CONVULSION [None]
  - ATRIAL FIBRILLATION [None]
  - HEADACHE [None]
  - DIZZINESS [None]
